FAERS Safety Report 18411274 (Version 3)
Quarter: 2021Q1

REPORT INFORMATION
  Report Type: Spontaneous
  Country: US (occurrence: US)
  Receive Date: 20201021
  Receipt Date: 20210324
  Transmission Date: 20210419
  Serious: Yes (Hospitalization, Disabling, Other)
  Sender: FDA-Public Use
  Company Number: US-PURDUE-USA-2020-0171935

PATIENT
  Sex: Male

DRUGS (3)
  1. OXYCONTIN [Suspect]
     Active Substance: OXYCODONE HYDROCHLORIDE
     Indication: EMOTIONAL DISTRESS
  2. OXYCONTIN [Suspect]
     Active Substance: OXYCODONE HYDROCHLORIDE
     Indication: PAIN
     Dosage: UNK
     Route: 048
     Dates: start: 2011
  3. PERCOCET                           /00446701/ [Suspect]
     Active Substance: ACETAMINOPHEN\OXYCODONE HYDROCHLORIDE\OXYCODONE TEREPHTHALATE
     Indication: PAIN
     Dosage: UNK
     Route: 065
     Dates: start: 2011

REACTIONS (12)
  - Drug withdrawal syndrome [Unknown]
  - Drug dependence [Unknown]
  - Upper limb fracture [Unknown]
  - Hallucination [Unknown]
  - Emotional distress [Unknown]
  - Fall [Unknown]
  - Pain [Unknown]
  - Drug abuse [Unknown]
  - Brain injury [Unknown]
  - Overdose [Unknown]
  - Drug tolerance [Unknown]
  - Judgement impaired [Unknown]

NARRATIVE: CASE EVENT DATE: 20110518
